FAERS Safety Report 24274529 (Version 2)
Quarter: 2025Q1

REPORT INFORMATION
  Report Type: Spontaneous
  Country: US (occurrence: US)
  Receive Date: 20240902
  Receipt Date: 20250319
  Transmission Date: 20250408
  Serious: No
  Sender: Kenvue
  Company Number: US-JNJFOC-20240856348

PATIENT

DRUGS (1)
  1. WOMENS ROGAINE UNSCENTED [Suspect]
     Active Substance: MINOXIDIL
     Indication: Alopecia
     Route: 061
     Dates: start: 20240224, end: 2024

REACTIONS (4)
  - Hair texture abnormal [Unknown]
  - Trichorrhexis [Unknown]
  - Incorrect dose administered [Unknown]
  - Application site irritation [Unknown]

NARRATIVE: CASE EVENT DATE: 20240101
